FAERS Safety Report 8776785 (Version 2)
Quarter: 2012Q4

REPORT INFORMATION
  Report Type: 
  Country: US (occurrence: US)
  Receive Date: 20120911
  Receipt Date: 20121221
  Transmission Date: 20130627
  Serious: No
  Sender: FDA-Public Use
  Company Number: US-009507513-1209USA000774

PATIENT
  Age: 16 Year
  Sex: Female
  Weight: 88.44 kg

DRUGS (3)
  1. IMPLANON [Suspect]
     Indication: CONTRACEPTION
     Dosage: UNK
     Route: 059
     Dates: start: 20110324
  2. SEROQUEL [Concomitant]
  3. IBUPROFEN [Concomitant]

REACTIONS (3)
  - Metrorrhagia [Unknown]
  - Abdominal pain lower [Unknown]
  - Menstruation delayed [Recovered/Resolved]
